FAERS Safety Report 24665640 (Version 1)
Quarter: 2024Q4

REPORT INFORMATION
  Report Type: Spontaneous
  Country: GB (occurrence: GB)
  Receive Date: 20241126
  Receipt Date: 20241126
  Transmission Date: 20250115
  Serious: Yes (Hospitalization, Other)
  Sender: DR REDDYS
  Company Number: None

PATIENT
  Age: 68 Year
  Sex: Female

DRUGS (9)
  1. IMATINIB [Suspect]
     Active Substance: IMATINIB
  2. INSULIN ASPART [Concomitant]
     Active Substance: INSULIN ASPART
     Dosage: NOVOMIX FLEXPEN 36 UNITS, 16 UNITS
  3. BUMETANIDE [Concomitant]
     Active Substance: BUMETANIDE
     Dosage: 3MG AT 10AM, 2MG AT 2PM
  4. AMOXICILLIN\CLAVULANATE POTASSIUM [Concomitant]
     Active Substance: AMOXICILLIN\CLAVULANATE POTASSIUM
     Dosage: 625MG TDS
  5. DAPAGLIFLOZIN [Concomitant]
     Active Substance: DAPAGLIFLOZIN
     Dosage: 10MG OD
     Dates: start: 20241114
  6. CARBOCYSTEINE [Concomitant]
     Active Substance: CARBOCYSTEINE
     Dosage: 750MG TDS
  7. ACETAMINOPHEN [Concomitant]
     Active Substance: ACETAMINOPHEN
     Dosage: 1G QDS PRN
  8. FEXOFENADINE [Concomitant]
     Active Substance: FEXOFENADINE HYDROCHLORIDE
     Dosage: 180MG OD
  9. FOLIC ACID [Concomitant]
     Active Substance: FOLIC ACID
     Dosage: 5MG OD
     Route: 048

REACTIONS (2)
  - Left ventricular dysfunction [Unknown]
  - Cardiotoxicity [Unknown]
